FAERS Safety Report 6130992-4 (Version None)
Quarter: 2009Q1

REPORT INFORMATION
  Report Type: 
  Country: None (occurrence: None)
  Receive Date: 20090325
  Receipt Date: 20090310
  Transmission Date: 20090719
  Serious: Yes (Death, Life-Threatening, Other)
  Sender: FDA-Public Use
  Company Number: FR-PFIZER INC-2007089669

PATIENT

DRUGS (1)
  1. LYRICA [Suspect]
     Indication: SCIATICA

REACTIONS (3)
  - MALAISE [None]
  - SUDDEN DEATH [None]
  - VENTRICULAR EXTRASYSTOLES [None]
